FAERS Safety Report 8558932-9 (Version None)
Quarter: 2012Q3

REPORT INFORMATION
  Report Type: 
  Country: None (occurrence: None)
  Receive Date: 20120802
  Receipt Date: 20120719
  Transmission Date: 20120928
  Serious: Yes (Hospitalization)
  Sender: FDA-Public Use
  Company Number: IR-MYLANLABS-2012S1015234

PATIENT
  Age: 28 Year
  Sex: Male

DRUGS (2)
  1. VALPROATE SODIUM [Suspect]
     Route: 065
  2. THIORIDAZINE HCL [Suspect]
     Route: 065

REACTIONS (1)
  - NEUROLEPTIC MALIGNANT SYNDROME [None]
